FAERS Safety Report 11123422 (Version 1)
Quarter: 2015Q2

REPORT INFORMATION
  Report Type: Not Available
  Country: CN (occurrence: CN)
  Receive Date: 20150519
  Receipt Date: 20150519
  Transmission Date: 20150821
  Serious: Yes (Death, Other)
  Sender: FDA-Public Use
  Company Number: CN-MUNDIPHARMA DS AND PHARMACOVIGILANCE-GBR-2015-0027810

PATIENT
  Age: 80 Year
  Sex: Male
  Weight: 65 kg

DRUGS (1)
  1. MS CONTIN [Suspect]
     Active Substance: MORPHINE SULFATE
     Indication: PAIN
     Dosage: 15 MG, DAILY
     Route: 048
     Dates: start: 20141030, end: 20141030

REACTIONS (6)
  - Oxygen saturation decreased [Fatal]
  - Blood pressure decreased [Fatal]
  - Toxicity to various agents [Unknown]
  - Coma [Fatal]
  - Cardio-respiratory arrest [Fatal]
  - Somnolence [Fatal]

NARRATIVE: CASE EVENT DATE: 20141030
